FAERS Safety Report 6607315-7 (Version None)
Quarter: 2010Q1

REPORT INFORMATION
  Report Type: 
  Country: None (occurrence: None)
  Receive Date: 20100228
  Receipt Date: 20100217
  Transmission Date: 20100710
  Serious: Yes (Death)
  Sender: FDA-Public Use
  Company Number: DE-BRISTOL-MYERS SQUIBB COMPANY-14979884

PATIENT
  Age: 54 Year
  Sex: Male

DRUGS (5)
  1. TAXOL [Suspect]
     Indication: NON-SMALL CELL LUNG CANCER
     Dosage: ON DAYS 1, 8 AND 15 OF 29 DAY CYCLE
     Dates: start: 20030311, end: 20030522
  2. CARBOPLATIN [Suspect]
     Indication: NON-SMALL CELL LUNG CANCER
     Dosage: 1DOSAGEFORM=AUC5
     Dates: start: 20030311, end: 20030508
  3. DEXAMETHASONE [Concomitant]
     Route: 048
     Dates: start: 20030311
  4. CLEMASTINE FUMARATE [Concomitant]
     Route: 042
     Dates: start: 20030311
  5. RANITIDINE [Concomitant]
     Route: 042
     Dates: start: 20030311

REACTIONS (2)
  - GENERAL PHYSICAL HEALTH DETERIORATION [None]
  - UPPER GASTROINTESTINAL HAEMORRHAGE [None]
